FAERS Safety Report 10259807 (Version 1)
Quarter: 2014Q2

REPORT INFORMATION
  Report Type: Report from Study
  Country: CA (occurrence: CA)
  Receive Date: 20140625
  Receipt Date: 20140625
  Transmission Date: 20141212
  Serious: Yes (Hospitalization)
  Sender: FDA-Public Use
  Company Number: CA-PFIZER INC-2014168763

PATIENT
  Age: 68 Year
  Sex: Female
  Weight: 114 kg

DRUGS (18)
  1. CELEBREX [Suspect]
     Dosage: UNK
  2. CITALOPRAM [Suspect]
     Dosage: TABLET
  3. LYRICA [Suspect]
     Dosage: 150 MG, 2X/DAY
  4. RAMIPRIL [Suspect]
     Dosage: UNK
  5. INSULIN [Suspect]
     Dosage: UNK
  6. LASIX [Suspect]
     Dosage: 20 MG, 1X/DAY
  7. ACETAMINOPHEN [Concomitant]
  8. ATORVASTATIN CALCIUM [Concomitant]
     Dosage: TABLET
  9. BISOPROLOL [Concomitant]
     Dosage: TABLET
  10. FENOFIBRATE [Concomitant]
  11. LANTUS [Concomitant]
     Dosage: SOLUTION SUBCUTANEOUS
     Route: 058
  12. METFORMIN [Concomitant]
     Dosage: TABLET
  13. METOPROLOL [Concomitant]
  14. OXYCONTIN [Concomitant]
     Dosage: TABLET (EXTENDED-RELEASE)
  15. PANTOPRAZOLE [Concomitant]
  16. PERINDOPRIL [Concomitant]
  17. RABEPRAZOLE [Concomitant]
  18. SALBUTAMOL [Concomitant]

REACTIONS (14)
  - Cognitive disorder [Not Recovered/Not Resolved]
  - Condition aggravated [Not Recovered/Not Resolved]
  - Depression [Not Recovered/Not Resolved]
  - Diabetes mellitus inadequate control [Not Recovered/Not Resolved]
  - Dysarthria [Not Recovered/Not Resolved]
  - Dyskinesia [Not Recovered/Not Resolved]
  - Encephalopathy [Not Recovered/Not Resolved]
  - Hypotension [Not Recovered/Not Resolved]
  - Muscular weakness [Not Recovered/Not Resolved]
  - Myoclonus [Not Recovered/Not Resolved]
  - Nervous system disorder [Not Recovered/Not Resolved]
  - Renal failure [Not Recovered/Not Resolved]
  - Tremor [Not Recovered/Not Resolved]
  - Drug ineffective [Not Recovered/Not Resolved]
